FAERS Safety Report 7269016 (Version 3)
Quarter: 2012Q4

REPORT INFORMATION
  Report Type: 
  Country: BR (occurrence: BR)
  Receive Date: 20100202
  Receipt Date: 20121223
  Transmission Date: 20130627
  Serious: Yes (Other)
  Sender: FDA-Public Use
  Company Number: PHHY2010BR03492

PATIENT
  Age: 80 Year
  Sex: Female
  Weight: 40 kg

DRUGS (1)
  1. EXELON [Suspect]
     Indication: DEMENTIA ALZHEIMER^S TYPE
     Dosage: 1 DF daily
     Route: 048
     Dates: start: 2000

REACTIONS (7)
  - Abdominal pain upper [Recovered/Resolved]
  - Abnormal behaviour [Recovered/Resolved]
  - Nervousness [Recovered/Resolved]
  - Hallucination [Recovered/Resolved]
  - Mouth ulceration [Recovered/Resolved]
  - Nausea [Recovered/Resolved]
  - Vomiting [Recovered/Resolved]
